FAERS Safety Report 5140701-3 (Version None)
Quarter: 2006Q4

REPORT INFORMATION
  Report Type: 
  Country: None (occurrence: None)
  Receive Date: 20061025
  Receipt Date: 20061016
  Transmission Date: 20070319
  Serious: Yes (Other)
  Sender: FDA-Public Use
  Company Number: 2006127303

PATIENT
  Age: 32 Year
  Sex: Male
  Weight: 138 kg

DRUGS (1)
  1. GENOTROPIN [Suspect]
     Indication: HYPOPITUITARISM
     Dosage: 0.3 MG (0.3 MG, FREQUENCY:  OD)
     Dates: start: 20060202

REACTIONS (2)
  - CRANIOPHARYNGIOMA [None]
  - NEOPLASM RECURRENCE [None]
